FAERS Safety Report 8458670-7 (Version None)
Quarter: 2012Q2

REPORT INFORMATION
  Report Type: 
  Country: None (occurrence: None)
  Receive Date: 20120622
  Receipt Date: 20120614
  Transmission Date: 20120825
  Serious: Yes (Hospitalization)
  Sender: FDA-Public Use
  Company Number: US-BAYER-2011-071000

PATIENT
  Age: 39 Year
  Sex: Female
  Weight: 58.957 kg

DRUGS (16)
  1. MEDROL [Concomitant]
  2. DEXAMETHASONE [Concomitant]
     Dosage: 1 CC
     Route: 030
  3. DEXAMETHASONE ACETATE [Concomitant]
     Dosage: 1 CC
     Route: 030
  4. MEPERIDINE/PROMETHAZINE [Concomitant]
  5. YASMIN [Suspect]
     Indication: CONTRACEPTION
     Dosage: UNK
     Dates: start: 20020701, end: 20041001
  6. FLEXERIL [Concomitant]
     Dosage: 10 MG, UNK
  7. LEVAQUIN [Concomitant]
     Dosage: 500 MG
  8. YASMIN [Suspect]
     Indication: PREMENSTRUAL SYNDROME
  9. OXYCONTIN [Concomitant]
     Dosage: 30 MG
  10. AMBIEN [Concomitant]
  11. H-C TUSSIVE [Concomitant]
  12. PERCOCET [Concomitant]
     Dosage: 7.5/500
  13. NEXIUM [Concomitant]
     Dosage: 40 MG
  14. SKELAXIN [Concomitant]
     Dosage: 400 MG
     Route: 048
  15. PHENERGAN [Concomitant]
     Dosage: 25 MG
  16. MIDRIN [Concomitant]
     Route: 048

REACTIONS (6)
  - ANXIETY [None]
  - ANHEDONIA [None]
  - EMOTIONAL DISTRESS [None]
  - PULMONARY EMBOLISM [None]
  - DEEP VEIN THROMBOSIS [None]
  - PAIN [None]
